FAERS Safety Report 5152182-4 (Version None)
Quarter: 2006Q4

REPORT INFORMATION
  Report Type: 
  Country: None (occurrence: None)
  Receive Date: 20061116
  Receipt Date: 20061110
  Transmission Date: 20070319
  Serious: Yes (Other)
  Sender: FDA-Public Use
  Company Number: GB-GLAXOSMITHKLINE-B0446135A

PATIENT
  Age: 66 Year
  Sex: Male

DRUGS (1)
  1. AUGMENTIN '125' [Suspect]
     Dosage: 375MG THREE TIMES PER DAY
     Route: 048
     Dates: start: 20060101

REACTIONS (1)
  - JAUNDICE CHOLESTATIC [None]
